FAERS Safety Report 6336149-6 (Version None)
Quarter: 2009Q3

REPORT INFORMATION
  Report Type: 
  Country: None (occurrence: None)
  Receive Date: 20090828
  Receipt Date: 20090818
  Transmission Date: 20100115
  Serious: Yes (Other)
  Sender: FDA-Public Use
  Company Number: ADR14022009

PATIENT
  Age: 34 Year
  Sex: Male

DRUGS (2)
  1. CITALOPRAM HYDROBROMIDE [Suspect]
     Dosage: ORAL
     Route: 048
  2. CHAMPIX [Concomitant]

REACTIONS (4)
  - AGGRESSION [None]
  - DRUG INTERACTION [None]
  - HYPOMANIA [None]
  - MANIA [None]
